FAERS Safety Report 5204509-2 (Version None)
Quarter: 2007Q1

REPORT INFORMATION
  Report Type: 
  Country: None (occurrence: None)
  Receive Date: 20070110
  Receipt Date: 20060612
  Transmission Date: 20070707
  Serious: Yes (Other)
  Sender: FDA-Public Use
  Company Number: US-BRISTOL-MYERS SQUIBB COMPANY-13351663

PATIENT
  Age: 57 Year
  Sex: Female

DRUGS (7)
  1. ABILIFY [Suspect]
     Indication: BIPOLAR DISORDER
     Route: 048
     Dates: start: 20051002
  2. GEODON [Concomitant]
  3. ZOLOFT [Concomitant]
  4. ZITHROMAX [Concomitant]
  5. DEPAKOTE [Concomitant]
  6. LAMICTAL [Concomitant]
  7. PREVACID [Concomitant]

REACTIONS (1)
  - EXTRAPYRAMIDAL DISORDER [None]
